FAERS Safety Report 21942733 (Version 1)
Quarter: 2023Q1

REPORT INFORMATION
  Report Type: Spontaneous
  Country: US (occurrence: US)
  Receive Date: 20230202
  Receipt Date: 20230202
  Transmission Date: 20230417
  Serious: No
  Sender: FDA-Public Use
  Company Number: US-BIOVITRUM-2023US01441

PATIENT
  Sex: Female
  Weight: 5.9 kg

DRUGS (4)
  1. SYNAGIS [Suspect]
     Active Substance: PALIVIZUMAB
     Indication: Premature baby
     Dates: start: 20221003
  2. SIMETHICONE (DIMETHICONE) [Concomitant]
     Active Substance: DIMETHICONE
     Dosage: 40MG/0.6 ML DROPS SUSPENSION
  3. SYNAGIS [Suspect]
     Active Substance: PALIVIZUMAB
     Indication: Retinopathy of prematurity
  4. CHILDRENS TYLENOL [Concomitant]
     Active Substance: ACETAMINOPHEN

REACTIONS (1)
  - Ear infection [Unknown]
